FAERS Safety Report 10464103 (Version 1)
Quarter: 2014Q3

REPORT INFORMATION
  Report Type: Spontaneous
  Country: US (occurrence: None)
  Receive Date: 20140918
  Receipt Date: 20140918
  Transmission Date: 20150326
  Serious: Yes (Other)
  Sender: FDA-Public Use
  Company Number: None

PATIENT
  Age: 55 Year
  Sex: Female
  Weight: 62.14 kg

DRUGS (3)
  1. QUETIAPINE [Suspect]
     Active Substance: QUETIAPINE
     Indication: MOOD ALTERED
     Dosage: ONE PILL  QHS/BEDTIME  ORAL
     Route: 048
     Dates: start: 20120301, end: 20120903
  2. PAXIL [Concomitant]
     Active Substance: PAROXETINE HYDROCHLORIDE
  3. QUETIAPINE [Suspect]
     Active Substance: QUETIAPINE
     Indication: PSYCHOTIC DISORDER
     Dosage: ONE PILL  QHS/BEDTIME  ORAL
     Route: 048
     Dates: start: 20120301, end: 20120903

REACTIONS (2)
  - Drug ineffective [None]
  - Product substitution issue [None]
